FAERS Safety Report 4410768-6 (Version None)
Quarter: 2004Q3

REPORT INFORMATION
  Report Type: 
  Country: None (occurrence: None)
  Receive Date: 20040726
  Receipt Date: 20040712
  Transmission Date: 20050211
  Serious: Yes (Hospitalization, Disabling)
  Sender: FDA-Public Use
  Company Number: 04P-163-0266785-00

PATIENT
  Age: 61 Year
  Sex: Female

DRUGS (3)
  1. HUMIRA [Suspect]
     Indication: RHEUMATOID ARTHRITIS
     Dosage: 40 MG, 1 IN 2 WK, SUBCUTANEOUS
     Route: 058
     Dates: start: 20030501, end: 20040524
  2. METHOTREXATE SODIUM [Suspect]
     Indication: RHEUMATOID ARTHRITIS
     Dosage: 12.5 MG, 1 IN 1 WK, PER ORAL
     Route: 048
     Dates: start: 20021001
  3. DICLOFENAC SODIUM [Concomitant]

REACTIONS (4)
  - ARTHRITIS BACTERIAL [None]
  - BACK PAIN [None]
  - BLINDNESS UNILATERAL [None]
  - EYE INFECTION STAPHYLOCOCCAL [None]
